FAERS Safety Report 26044859 (Version 1)
Quarter: 2025Q4

REPORT INFORMATION
  Report Type: Spontaneous
  Country: US (occurrence: US)
  Receive Date: 20251114
  Receipt Date: 20251114
  Transmission Date: 20260119
  Serious: No
  Sender: HIKMA
  Company Number: US-HIKMA PHARMACEUTICALS USA INC.-US-H14001-24-08253

PATIENT
  Age: 94 Year
  Sex: Female
  Weight: 62.585 kg

DRUGS (1)
  1. FUROSEMIDE [Suspect]
     Active Substance: FUROSEMIDE
     Indication: Diuretic therapy
     Dosage: 40 MILLIGRAM, BID FOR A WEEK, ONCE A DAY AFTER THE WEEK
     Route: 048
     Dates: start: 202402, end: 202407

REACTIONS (3)
  - Weight decreased [Unknown]
  - Fatigue [Unknown]
  - Skin wrinkling [Unknown]

NARRATIVE: CASE EVENT DATE: 20240201
